FAERS Safety Report 5337889-8 (Version None)
Quarter: 2007Q2

REPORT INFORMATION
  Report Type: 
  Country: None (occurrence: None)
  Receive Date: 20070327
  Receipt Date: 20070112
  Transmission Date: 20071010
  Serious: No
  Sender: FDA-Public Use
  Company Number: 235101

PATIENT
  Age: 48 Year
  Sex: Female

DRUGS (3)
  1. AVASTIN [Suspect]
     Indication: BREAST CANCER METASTATIC
     Dosage: 10 MG/KG, Q2W, INTRAVENOUS
     Route: 042
  2. GEMCITABINE [Concomitant]
  3. PACLITAXEL [Concomitant]

REACTIONS (1)
  - DISEASE PROGRESSION [None]
